FAERS Safety Report 4551767-3 (Version None)
Quarter: 2005Q1

REPORT INFORMATION
  Report Type: 
  Country: None (occurrence: None)
  Receive Date: 20050113
  Receipt Date: 20030902
  Transmission Date: 20050727
  Serious: Yes (Hospitalization)
  Sender: FDA-Public Use
  Company Number: FR-GLAXOSMITHKLINE-B0307952A

PATIENT
  Age: 72 Year
  Sex: Male
  Weight: 94.2 kg

DRUGS (3)
  1. AVANDIA [Suspect]
     Indication: DIABETES MELLITUS NON-INSULIN-DEPENDENT
     Dosage: 8MG PER DAY
     Route: 048
     Dates: start: 20030128
  2. AMARYL [Concomitant]
     Indication: DIABETES MELLITUS NON-INSULIN-DEPENDENT
     Dosage: 6MG PER DAY
     Route: 048
     Dates: start: 20000412
  3. ANTI-HYPERLIPIDAEMIC (UNSPECIFIED) [Concomitant]
     Indication: DYSLIPIDAEMIA
     Route: 048

REACTIONS (5)
  - BLOOD CREATININE INCREASED [None]
  - DYSPNOEA [None]
  - HYPOCHROMIC ANAEMIA [None]
  - OEDEMA PERIPHERAL [None]
  - WEIGHT INCREASED [None]
